FAERS Safety Report 10094095 (Version 2)
Quarter: 2014Q2

REPORT INFORMATION
  Report Type: Report from Study
  Country: US (occurrence: US)
  Receive Date: 20140422
  Receipt Date: 20140516
  Transmission Date: 20141212
  Serious: Yes (Hospitalization)
  Sender: FDA-Public Use
  Company Number: US-BIOGENIDEC-2014BI036184

PATIENT
  Age: 57 Year
  Sex: Female
  Weight: 70 kg

DRUGS (10)
  1. TECFIDERA [Suspect]
     Indication: MULTIPLE SCLEROSIS
     Route: 048
     Dates: start: 201312
  2. TECFIDERA [Suspect]
     Indication: MULTIPLE SCLEROSIS
     Route: 048
  3. CLONIDINE [Concomitant]
  4. XANAX [Concomitant]
  5. OXYCODONE [Concomitant]
  6. LISINOPRIL [Concomitant]
  7. NITROFURANTOIN [Concomitant]
  8. AMITIZA [Concomitant]
  9. NUEDEXTA [Concomitant]
  10. ZOFRAN [Concomitant]

REACTIONS (3)
  - Urinary tract infection [Recovered/Resolved]
  - Multiple sclerosis relapse [Recovered/Resolved]
  - Mobility decreased [Recovered/Resolved]
